FAERS Safety Report 7674911-8 (Version None)
Quarter: 2011Q3

REPORT INFORMATION
  Report Type: 
  Country: None (occurrence: None)
  Receive Date: 20110810
  Receipt Date: 20110727
  Transmission Date: 20111222
  Serious: No
  Sender: FDA-Public Use
  Company Number: CA-ELI_LILLY_AND_COMPANY-CA201107007223

PATIENT
  Sex: Female

DRUGS (13)
  1. CLONAPAM [Concomitant]
  2. FOLIC ACID [Concomitant]
  3. ZYPREXA [Suspect]
     Indication: SCHIZOPHRENIA
     Dosage: 1 DF, UNK
  4. ZYPREXA [Suspect]
     Dosage: 35 MG, QD
  5. ZYPREXA [Suspect]
     Dosage: 20 MG, QD
  6. TOPAMAX [Concomitant]
  7. ZYPREXA ZYDIS [Suspect]
     Indication: SCHIZOPHRENIA
     Dosage: 10 MG, UNK
  8. ZYPREXA [Suspect]
     Dosage: 10 MG, QD
  9. HYDROCHLOROTHIAZIDE [Concomitant]
  10. ZYPREXA [Suspect]
     Dosage: 15 MG, QD
  11. OXAZEPAM [Concomitant]
  12. PROCYCLIDINE HYDROCHLORIDE 2MG TAB [Concomitant]
  13. FLUANXOL [Concomitant]

REACTIONS (7)
  - HAEMOPTYSIS [None]
  - WEIGHT INCREASED [None]
  - BLOOD CHOLESTEROL INCREASED [None]
  - TYPE 2 DIABETES MELLITUS [None]
  - OVERDOSE [None]
  - BLOOD TRIGLYCERIDES INCREASED [None]
  - GAMMA-GLUTAMYLTRANSFERASE INCREASED [None]
